FAERS Safety Report 13221850 (Version 1)
Quarter: 2017Q1

REPORT INFORMATION
  Report Type: Spontaneous
  Country: PT (occurrence: FR)
  Receive Date: 20170211
  Receipt Date: 20170211
  Transmission Date: 20170428
  Serious: Yes (Other)
  Sender: FDA-Public Use
  Company Number: PT-SUNOVION-2017SUN000433

PATIENT

DRUGS (4)
  1. XEROQUEL [Concomitant]
     Active Substance: QUETIAPINE FUMARATE
  2. URBANYL [Concomitant]
     Active Substance: CLOBAZAM
     Dosage: UNK
  3. LOXAPAC [Concomitant]
     Active Substance: LOXAPINE SUCCINATE
     Dosage: UNK
  4. ZEBINIX [Suspect]
     Active Substance: ESLICARBAZEPINE ACETATE
     Indication: EPILEPSY
     Dosage: 800 MG, DAILY
     Route: 048
     Dates: start: 20161220, end: 20161229

REACTIONS (3)
  - Neutropenia [Recovered/Resolved]
  - Drug dose titration not performed [Unknown]
  - Leukopenia [Recovered/Resolved]

NARRATIVE: CASE EVENT DATE: 201612
